FAERS Safety Report 21749560 (Version 18)
Quarter: 2023Q2

REPORT INFORMATION
  Report Type: Report from Study
  Country: MX (occurrence: MX)
  Receive Date: 20221219
  Receipt Date: 20230531
  Transmission Date: 20230721
  Serious: Yes (Death, Other)
  Sender: FDA-Public Use
  Company Number: MX-GSK-MX2022185839

PATIENT

DRUGS (6)
  1. BELANTAMAB MAFODOTIN [Suspect]
     Active Substance: BELANTAMAB MAFODOTIN
     Indication: Plasma cell myeloma refractory
     Dosage: 40.45 MG, CYC (0.50 MG/KG) Q4W
     Route: 042
     Dates: start: 20220915, end: 20220915
  2. BELANTAMAB MAFODOTIN [Suspect]
     Active Substance: BELANTAMAB MAFODOTIN
     Dosage: 39.5 MG, CYC  (0.50 MG/KG) Q4W
     Route: 042
     Dates: start: 20221013, end: 20221013
  3. BELANTAMAB MAFODOTIN [Suspect]
     Active Substance: BELANTAMAB MAFODOTIN
     Dosage: 38.5 MG, CYC
     Route: 042
     Dates: start: 20221110, end: 20221110
  4. NIROGACESTAT [Suspect]
     Active Substance: NIROGACESTAT
     Indication: Plasma cell myeloma refractory
     Dosage: 1 DF (TABLET) , BID
     Route: 048
     Dates: start: 20220915, end: 20221207
  5. POMALIDOMIDE [Suspect]
     Active Substance: POMALIDOMIDE
     Indication: Plasma cell myeloma refractory
     Dosage: 4 MG, QD
     Route: 048
     Dates: start: 20220915, end: 20221130
  6. DEXAMETHASONE [Suspect]
     Active Substance: DEXAMETHASONE
     Indication: Plasma cell myeloma refractory
     Dosage: 40 MG, QD
     Route: 048
     Dates: start: 20220915, end: 20221201

REACTIONS (14)
  - Liver injury [Fatal]
  - Dehydration [Fatal]
  - Acute kidney injury [Fatal]
  - Acid-base balance disorder mixed [Fatal]
  - Hypomagnesaemia [Not Recovered/Not Resolved]
  - Hypocalcaemia [Recovered/Resolved]
  - Hypoalbuminaemia [Not Recovered/Not Resolved]
  - Atrial fibrillation [Not Recovered/Not Resolved]
  - Anaemia [Recovered/Resolved with Sequelae]
  - Neutropenia [Recovered/Resolved with Sequelae]
  - Thrombocytopenia [Recovered/Resolved with Sequelae]
  - Hypokalaemia [Recovered/Resolved]
  - Hyponatraemia [Recovered/Resolved]
  - Hypotension [Not Recovered/Not Resolved]

NARRATIVE: CASE EVENT DATE: 20221205
